FAERS Safety Report 8054323-8 (Version None)
Quarter: 2012Q1

REPORT INFORMATION
  Report Type: 
  Country: None (occurrence: None)
  Receive Date: 20120118
  Receipt Date: 20120112
  Transmission Date: 20120608
  Serious: Yes (Other)
  Sender: FDA-Public Use
  Company Number: PHEH2011US01040

PATIENT
  Sex: Female

DRUGS (6)
  1. DECADRON [Concomitant]
  2. PHENERGAN [Concomitant]
  3. LORTAB [Concomitant]
  4. MORPHINE SULFATE [Concomitant]
  5. TEBAMIDE [Concomitant]
  6. ZOMETA [Suspect]
     Indication: BREAST CANCER
     Dosage: 4 MG, QMO
     Route: 042
     Dates: start: 20031201, end: 20040401

REACTIONS (8)
  - HILAR LYMPHADENOPATHY [None]
  - METASTASES TO BONE [None]
  - OEDEMA PERIPHERAL [None]
  - INTERVERTEBRAL DISC DEGENERATION [None]
  - GASTROOESOPHAGEAL REFLUX DISEASE [None]
  - METASTASES TO LUNG [None]
  - ATELECTASIS [None]
  - CHRONIC OBSTRUCTIVE PULMONARY DISEASE [None]
